FAERS Safety Report 19370778 (Version 1)
Quarter: 2021Q2

REPORT INFORMATION
  Report Type: Spontaneous
  Country: JP (occurrence: JP)
  Receive Date: 20210604
  Receipt Date: 20210604
  Transmission Date: 20210717
  Serious: Yes (Other)
  Sender: FDA-Public Use
  Company Number: JP-TEVA-202105_00011795

PATIENT
  Age: 62 Year
  Sex: Male
  Weight: 73 kg

DRUGS (9)
  1. CABOMETYX [Suspect]
     Active Substance: CABOZANTINIB S-MALATE
     Route: 048
     Dates: start: 20201222, end: 20210114
  2. NIVOLUMAB [Suspect]
     Active Substance: NIVOLUMAB
     Dosage: 240 MG
     Dates: start: 201811
  3. TAMSULOSIN HYDROCHLORIDE OD TABLET 0.2MG ^TYK^ [Suspect]
     Active Substance: TAMSULOSIN HYDROCHLORIDE
     Indication: BENIGN PROSTATIC HYPERPLASIA
     Dosage: .2 MILLIGRAM DAILY;
     Route: 048
     Dates: start: 20180110
  4. CABOMETYX [Suspect]
     Active Substance: CABOZANTINIB S-MALATE
     Dosage: 20 MILLIGRAM DAILY;
     Route: 048
     Dates: start: 20200911, end: 20201110
  5. SUNITINIB [Suspect]
     Active Substance: SUNITINIB
     Dates: start: 201802
  6. LYRICA [Suspect]
     Active Substance: PREGABALIN
     Indication: PAIN
     Dosage: 150 MILLIGRAM DAILY;
     Route: 048
     Dates: start: 20200826, end: 20210413
  7. URSO [Suspect]
     Active Substance: URSODIOL
     Indication: LIVER DISORDER
     Dosage: 900 MILLIGRAM DAILY;
     Route: 048
     Dates: start: 20200911, end: 20210208
  8. TAKEPRON CAPSULES 15 [Suspect]
     Active Substance: LANSOPRAZOLE
     Indication: ABDOMINAL DISCOMFORT
     Dosage: 15 MILLIGRAM DAILY;
     Route: 048
     Dates: start: 20200826
  9. CABOMETYX [Suspect]
     Active Substance: CABOZANTINIB S-MALATE
     Indication: RENAL CELL CARCINOMA
     Dosage: 40 MILLIGRAM DAILY;
     Route: 048
     Dates: start: 20200828, end: 20200910

REACTIONS (6)
  - Metastases to bladder [Unknown]
  - Hepatic enzyme increased [Unknown]
  - Ulcer [Unknown]
  - Diarrhoea [Recovering/Resolving]
  - Metastases to bone [Unknown]
  - Liver disorder [Not Recovered/Not Resolved]

NARRATIVE: CASE EVENT DATE: 202008
